FAERS Safety Report 18287527 (Version 1)
Quarter: 2020Q3

REPORT INFORMATION
  Report Type: Spontaneous
  Country: FR (occurrence: FR)
  Receive Date: 20200921
  Receipt Date: 20200921
  Transmission Date: 20201103
  Serious: Yes (Hospitalization)
  Sender: FDA-Public Use
  Company Number: NVSC2020FR252212

PATIENT
  Age: 84 Year
  Sex: Female
  Weight: 47 kg

DRUGS (8)
  1. EUPANTOL [Suspect]
     Active Substance: PANTOPRAZOLE SODIUM
     Indication: GASTROINTESTINAL PROCEDURAL COMPLICATION
     Dosage: UNK
     Route: 065
     Dates: start: 20200622, end: 20200629
  2. SUFENTANIL [Suspect]
     Active Substance: SUFENTANIL
     Indication: SPINAL ANAESTHESIA
     Dosage: UNK
     Route: 037
     Dates: start: 20200622, end: 20200622
  3. ZOPHREN [Suspect]
     Active Substance: ONDANSETRON
     Indication: GASTROINTESTINAL PROCEDURAL COMPLICATION
     Dosage: UNK
     Route: 065
     Dates: start: 20200622, end: 20200625
  4. BUPIVACAINE HCL [Suspect]
     Active Substance: BUPIVACAINE HYDROCHLORIDE
     Indication: SPINAL ANAESTHESIA
     Dosage: UNK
     Route: 037
     Dates: start: 20200622, end: 20200622
  5. LOVENOX [Suspect]
     Active Substance: ENOXAPARIN SODIUM
     Indication: PRODUCT USED FOR UNKNOWN INDICATION
     Dosage: UNK
     Route: 058
     Dates: start: 20200622, end: 20200622
  6. CLONIDINE. [Suspect]
     Active Substance: CLONIDINE
     Indication: ANAESTHESIA
     Dosage: UNK
     Route: 065
     Dates: start: 20200622, end: 20200622
  7. HYPNOVEL [Suspect]
     Active Substance: MIDAZOLAM
     Indication: SPINAL ANAESTHESIA
     Dosage: UNK
     Route: 037
     Dates: start: 20200622, end: 20200622
  8. APRANAX [Suspect]
     Active Substance: NAPROXEN
     Indication: POSTOPERATIVE ANALGESIA
     Dosage: UNK
     Route: 065
     Dates: start: 20200622, end: 20200624

REACTIONS (2)
  - Anaemia [Recovered/Resolved]
  - Neutropenia [Recovered/Resolved]

NARRATIVE: CASE EVENT DATE: 20200623
